FAERS Safety Report 13023954 (Version 1)
Quarter: 2016Q4

REPORT INFORMATION
  Report Type: Report from Study
  Country: CO (occurrence: CO)
  Receive Date: 20161213
  Receipt Date: 20161213
  Transmission Date: 20170207
  Serious: Yes (Other)
  Sender: FDA-Public Use
  Company Number: CO-ELI_LILLY_AND_COMPANY-CO201612003889

PATIENT
  Age: 44 Year
  Sex: Male

DRUGS (1)
  1. CETUXIMAB [Suspect]
     Active Substance: CETUXIMAB
     Indication: COLORECTAL CANCER
     Dosage: 640 MG, UNKNOWN
     Route: 065
     Dates: start: 20150713

REACTIONS (4)
  - Dehydration [Not Recovered/Not Resolved]
  - Oesophagitis [Not Recovered/Not Resolved]
  - Hypophagia [Unknown]
  - Oral disorder [Not Recovered/Not Resolved]

NARRATIVE: CASE EVENT DATE: 201610
